FAERS Safety Report 4803087-7 (Version None)
Quarter: 2005Q4

REPORT INFORMATION
  Report Type: 
  Country: None (occurrence: None)
  Receive Date: 20051017
  Receipt Date: 20051017
  Transmission Date: 20060501
  Serious: Yes (Other)
  Sender: FDA-Public Use
  Company Number: None

PATIENT
  Age: 58 Year
  Sex: Male

DRUGS (11)
  1. SULINDAC [Suspect]
     Indication: ARTHRITIS
     Dosage: 200MG PO BID
     Route: 048
     Dates: start: 20050713, end: 20050719
  2. SULINDAC [Suspect]
     Indication: OEDEMA
     Dosage: 200MG PO BID
     Route: 048
     Dates: start: 20050713, end: 20050719
  3. SULINDAC [Suspect]
     Indication: PAIN
     Dosage: 200MG PO BID
     Route: 048
     Dates: start: 20050713, end: 20050719
  4. CYCLOPHOSHAMIDE [Concomitant]
  5. ETODOLAC [Concomitant]
  6. METHYLCELLULOSE [Concomitant]
  7. OMEPRAZOLE [Concomitant]
  8. OYST CAL D [Concomitant]
  9. PREDNISOLONE ACET [Concomitant]
  10. PREDNISONE [Concomitant]
  11. SULFAMETHOXAZONE 800/TRIMETH 160 [Concomitant]

REACTIONS (2)
  - HYPOAESTHESIA [None]
  - PARAESTHESIA [None]
